FAERS Safety Report 13226026 (Version 1)
Quarter: 2017Q1

REPORT INFORMATION
  Report Type: Spontaneous
  Country: US (occurrence: US)
  Receive Date: 20170211
  Receipt Date: 20170211
  Transmission Date: 20170428
  Serious: Yes (Disabling, Other)
  Sender: FDA-Public Use
  Company Number: None

PATIENT
  Age: 57 Year
  Sex: Female
  Weight: 49.5 kg

DRUGS (8)
  1. DULERA [Concomitant]
     Active Substance: FORMOTEROL FUMARATE DIHYDRATE\MOMETASONE FUROATE
  2. COQ10 [Concomitant]
     Active Substance: UBIDECARENONE
  3. ZOLOFT [Concomitant]
     Active Substance: SERTRALINE HYDROCHLORIDE
  4. PROBIOTIC [Concomitant]
     Active Substance: PROBIOTICS NOS
  5. MACROBID [Suspect]
     Active Substance: NITROFURANTOIN\NITROFURANTOIN MONOHYDRATE
     Indication: URINARY TRACT INFECTION
     Route: 048
     Dates: start: 20170109, end: 20170115
  6. MULTIVITAMIN [Concomitant]
     Active Substance: VITAMINS
  7. VIT. D W-CALCIUM [Concomitant]
  8. SINGULAIR [Concomitant]
     Active Substance: MONTELUKAST SODIUM

REACTIONS (4)
  - Ocular hyperaemia [None]
  - Vitreous floaters [None]
  - Eye disorder [None]
  - Urticaria [None]

NARRATIVE: CASE EVENT DATE: 20170125
